FAERS Safety Report 8436024-7 (Version None)
Quarter: 2012Q2

REPORT INFORMATION
  Report Type: 
  Country: None (occurrence: None)
  Receive Date: 20120608
  Receipt Date: 20120530
  Transmission Date: 20120825
  Serious: Yes (Other)
  Sender: FDA-Public Use
  Company Number: AUR-APL-2012-02542

PATIENT
  Age: 63 Year
  Sex: Male
  Weight: 68.03 kg

DRUGS (5)
  1. OMEPRAZOLE [Concomitant]
  2. LIPITOR [Suspect]
     Indication: BLOOD CHOLESTEROL INCREASED
     Dosage: (20 MG OR 40 MG)
  3. METOPROLOL TARTRATE [Concomitant]
  4. GLUCOSAMINE HYDROCHLORIDE/CHONDROITIN SULFATE (GLUCOSAMINE HYDROCHLORI [Concomitant]
  5. SIMVASTATIN [Suspect]
     Indication: BLOOD CHOLESTEROL INCREASED
     Dosage: (1 IN 1 D)

REACTIONS (5)
  - ASPARTATE AMINOTRANSFERASE INCREASED [None]
  - ALANINE AMINOTRANSFERASE INCREASED [None]
  - MUSCLE SPASMS [None]
  - ABASIA [None]
  - ANAEMIA HAEMOLYTIC AUTOIMMUNE [None]
